FAERS Safety Report 4444331-8 (Version None)
Quarter: 2004Q3

REPORT INFORMATION
  Report Type: 
  Country: None (occurrence: None)
  Receive Date: 20040729
  Receipt Date: 20040408
  Transmission Date: 20050211
  Serious: Yes (Other)
  Sender: FDA-Public Use
  Company Number: HQWYE408509APR04

PATIENT
  Age: 16 Year
  Sex: Male
  Weight: 61.29 kg

DRUGS (1)
  1. MINOCYCLINE HCL [Suspect]
     Indication: ACNE
     Dosage: 50 MG ONCE DAILY, ORAL
     Route: 048
     Dates: start: 20040301, end: 20040406

REACTIONS (5)
  - BENIGN INTRACRANIAL HYPERTENSION [None]
  - DIZZINESS [None]
  - FEELING ABNORMAL [None]
  - PRURITUS [None]
  - VISION BLURRED [None]
